FAERS Safety Report 13621994 (Version 2)
Quarter: 2017Q2

REPORT INFORMATION
  Report Type: Spontaneous
  Country: US (occurrence: US)
  Receive Date: 20170607
  Receipt Date: 20170611
  Transmission Date: 20170830
  Serious: Yes (Life-Threatening, Hospitalization, Other)
  Sender: FDA-Public Use
  Company Number: US-DRREDDYS-USA/USA/17/0091150

PATIENT
  Age: 47 Year
  Sex: Male

DRUGS (2)
  1. ASPIRIN. [Suspect]
     Active Substance: ASPIRIN
     Indication: CEREBRAL INFARCTION
     Route: 065
  2. CLOPIDOGREL BISULFATE. [Suspect]
     Active Substance: CLOPIDOGREL BISULFATE
     Indication: CEREBRAL INFARCTION
     Route: 065

REACTIONS (4)
  - Condition aggravated [Recovered/Resolved]
  - Haemorrhagic transformation stroke [Recovered/Resolved]
  - Brain oedema [Recovered/Resolved]
  - Hydrocephalus [Recovered/Resolved]
